FAERS Safety Report 5708344-8 (Version None)
Quarter: 2008Q2

REPORT INFORMATION
  Report Type: 
  Country: None (occurrence: None)
  Receive Date: 20080417
  Receipt Date: 20080411
  Transmission Date: 20081010
  Serious: Yes (Other)
  Sender: FDA-Public Use
  Company Number: BE-ASTRAZENECA-2008AC00940

PATIENT
  Age: 15 Year
  Sex: Male
  Weight: 42 kg

DRUGS (11)
  1. OMEPRAZOLE [Suspect]
     Indication: PROPHYLAXIS AGAINST GASTROINTESTINAL ULCER
     Route: 048
  2. METHOTREXATE [Interacting]
     Indication: ILL-DEFINED DISORDER
     Dosage: 5 G/M^2 OVER 24 HOURS DAY 8
     Route: 042
  3. METHOTREXATE [Interacting]
     Route: 042
  4. PREDNISOLONE [Concomitant]
     Indication: ILL-DEFINED DISORDER
     Dosage: DAY 1-7
  5. DEXAMETHASONE TAB [Concomitant]
     Indication: ILL-DEFINED DISORDER
     Dosage: DAY 8-28
     Route: 048
  6. CYCLOPHOSPHAMIDE [Concomitant]
     Indication: ILL-DEFINED DISORDER
     Dosage: 1 G/M^2 DAY 9
     Route: 042
  7. VINCRISTINE [Concomitant]
     Indication: ILL-DEFINED DISORDER
     Dosage: 1.5 MG/M^2 DAY 8, 15, 22 AND 29
     Route: 042
  8. DAUNORUBICIN HCL [Concomitant]
     Indication: ILL-DEFINED DISORDER
     Dosage: 40 MG/M^2 DAY 15, 22 AND 29
     Route: 042
  9. TRIPLE INTRATHECAL CHEMOTHERAPY [Concomitant]
     Indication: ILL-DEFINED DISORDER
     Dosage: DAY 8 AND 22
     Route: 037
  10. ELSPAR [Concomitant]
     Indication: ILL-DEFINED DISORDER
     Dosage: 10,000 U/M^2 DAY 12, 15, 18, 22, 25, 29, 32 AND 35
     Route: 042
  11. RANITIDINE [Concomitant]
     Indication: PROPHYLAXIS AGAINST GASTROINTESTINAL ULCER

REACTIONS (3)
  - DRUG CLEARANCE DECREASED [None]
  - DRUG INTERACTION [None]
  - MUCOSAL INFLAMMATION [None]
